FAERS Safety Report 7933939-0 (Version None)
Quarter: 2011Q4

REPORT INFORMATION
  Report Type: 
  Country: None (occurrence: None)
  Receive Date: 20111122
  Receipt Date: 20111116
  Transmission Date: 20120403
  Serious: Yes (Other)
  Sender: FDA-Public Use
  Company Number: US-JNJFOC-20111107332

PATIENT
  Sex: Male
  Weight: 129.28 kg

DRUGS (14)
  1. REMICADE [Suspect]
     Indication: CROHN'S DISEASE
     Dosage: 7 VIALS
     Route: 042
     Dates: start: 20090722
  2. ASACOL [Concomitant]
  3. COUMADIN [Concomitant]
  4. SUTENT [Concomitant]
  5. NIASPAN [Concomitant]
  6. PROTONIX [Concomitant]
  7. CELEBREX [Concomitant]
  8. AVELOX [Concomitant]
  9. SPIRIVA [Concomitant]
  10. LASIX [Concomitant]
  11. CHOLESTYRAMINE [Concomitant]
  12. LEXAPRO [Concomitant]
  13. METRONIDAZOLE [Concomitant]
  14. BYSTOLIC [Concomitant]

REACTIONS (1)
  - RENAL CELL CARCINOMA [None]
